FAERS Safety Report 16334658 (Version 2)
Quarter: 2019Q3

REPORT INFORMATION
  Report Type: Spontaneous
  Country: BR (occurrence: BR)
  Receive Date: 20190520
  Receipt Date: 20190702
  Transmission Date: 20191004
  Serious: Yes (Death, Hospitalization)
  Sender: FDA-Public Use
  Company Number: BR-CELGENEUS-BRA-20190506556

PATIENT
  Sex: Female

DRUGS (1)
  1. VIDAZA [Suspect]
     Active Substance: AZACITIDINE
     Indication: MYELODYSPLASTIC SYNDROME
     Route: 058
     Dates: start: 20181101, end: 20190312

REACTIONS (5)
  - Myocardial infarction [Unknown]
  - Red blood cell count decreased [Unknown]
  - Asthenia [Unknown]
  - Feeling abnormal [Unknown]
  - Death [Fatal]
